FAERS Safety Report 6701996-5 (Version None)
Quarter: 2010Q2

REPORT INFORMATION
  Report Type: 
  Country: None (occurrence: None)
  Receive Date: 20100429
  Receipt Date: 20100423
  Transmission Date: 20101027
  Serious: Yes (Life-Threatening)
  Sender: FDA-Public Use
  Company Number: DE-JNJFOC-20100406716

PATIENT
  Age: 73 Year
  Sex: Female
  Weight: 116 kg

DRUGS (8)
  1. CAELYX [Suspect]
     Indication: BREAST CANCER METASTATIC
     Route: 042
  2. ANTIALLERGIC DRUGS [Concomitant]
     Indication: PREMEDICATION
     Route: 065
  3. DEXAMETHASONE [Concomitant]
     Indication: PREMEDICATION
     Route: 065
  4. LASIX [Concomitant]
     Route: 065
  5. KEVATRIL [Concomitant]
     Route: 065
  6. ENDOXAN [Concomitant]
     Route: 065
  7. UROMITEXAN [Concomitant]
     Route: 065
  8. FLUOROURACIL [Concomitant]
     Route: 065

REACTIONS (3)
  - CIRCULATORY COLLAPSE [None]
  - INFUSION RELATED REACTION [None]
  - LOSS OF CONSCIOUSNESS [None]
